FAERS Safety Report 8258381-7 (Version None)
Quarter: 2012Q2

REPORT INFORMATION
  Report Type: 
  Country: None (occurrence: None)
  Receive Date: 20120404
  Receipt Date: 20120322
  Transmission Date: 20120825
  Serious: Yes (Other)
  Sender: FDA-Public Use
  Company Number: FR-COVIDIEN/TYCO HEALTHCARE/MALLINCKRODT-T201201351

PATIENT
  Age: 1 Year
  Sex: Female

DRUGS (1)
  1. METHYLIN [Suspect]
     Dosage: 3 MG, SINGLE

REACTIONS (2)
  - HYPERTHERMIA [None]
  - BLOOD CREATINE PHOSPHOKINASE INCREASED [None]
